FAERS Safety Report 12142029 (Version 3)
Quarter: 2016Q3

REPORT INFORMATION
  Report Type: Spontaneous
  Country: US (occurrence: US)
  Receive Date: 20160303
  Receipt Date: 20160815
  Transmission Date: 20161109
  Serious: No
  Sender: FDA-Public Use
  Company Number: US-ELI_LILLY_AND_COMPANY-US201602010101

PATIENT
  Age: 74 Year
  Sex: Female
  Weight: 90.7 kg

DRUGS (6)
  1. HUMALOG [Suspect]
     Active Substance: INSULIN LISPRO
     Dosage: SLIDING SCALE
     Route: 065
     Dates: start: 20160125
  2. HUMALOG [Suspect]
     Active Substance: INSULIN LISPRO
     Indication: PRODUCT USED FOR UNKNOWN INDICATION
     Dosage: UNK, UNKNOWN
     Route: 065
  3. HUMALOG [Suspect]
     Active Substance: INSULIN LISPRO
     Dosage: UNK UNK, QID
     Route: 065
  4. HUMALOG [Suspect]
     Active Substance: INSULIN LISPRO
     Indication: TYPE 2 DIABETES MELLITUS
     Dosage: SLIDING SCALE
     Route: 065
     Dates: start: 20160125
  5. TOUJEO [Concomitant]
     Active Substance: INSULIN GLARGINE
  6. HUMALOG [Suspect]
     Active Substance: INSULIN LISPRO
     Dosage: UNK UNK, SLIDING SCALE
     Route: 065

REACTIONS (6)
  - Injury associated with device [Unknown]
  - Limb discomfort [Unknown]
  - Weight increased [Unknown]
  - Injection site pain [Unknown]
  - Abdominal distension [Unknown]
  - Hunger [Unknown]

NARRATIVE: CASE EVENT DATE: 201602
